FAERS Safety Report 4407653-2 (Version None)
Quarter: 2004Q3

REPORT INFORMATION
  Report Type: 
  Country: None (occurrence: None)
  Receive Date: 20040721
  Receipt Date: 20040708
  Transmission Date: 20050211
  Serious: Yes (Other)
  Sender: FDA-Public Use
  Company Number: US-JNJFOC-20040302839

PATIENT

DRUGS (13)
  1. REOPRO [Suspect]
     Indication: CORONARY ARTERY SURGERY
     Dosage: INTRAVENOUS
     Route: 042
  2. HUMALOG [Concomitant]
  3. NEXIUM [Concomitant]
  4. VIOXX [Concomitant]
  5. ACCUPRIL [Concomitant]
  6. EVISTA [Concomitant]
  7. ATIVAN [Concomitant]
  8. GLUCOPHAGE [Concomitant]
  9. LIPITOR [Concomitant]
  10. TOPROL-XL [Concomitant]
  11. PLAVIX [Concomitant]
  12. B12 (CYANOCOBALAMIN) [Concomitant]
  13. FOLIC ACID [Concomitant]

REACTIONS (9)
  - CORONARY ARTERY STENOSIS [None]
  - DIFFICULTY IN WALKING [None]
  - HAEMORRHAGE [None]
  - IMPAIRED HEALING [None]
  - MYOCARDIAL INFARCTION [None]
  - MYOCARDIAL ISCHAEMIA [None]
  - STENT OCCLUSION [None]
  - THROMBOSIS [None]
  - VASCULAR PSEUDOANEURYSM [None]
